FAERS Safety Report 13891682 (Version 3)
Quarter: 2018Q3

REPORT INFORMATION
  Report Type: Spontaneous
  Country: RU (occurrence: RU)
  Receive Date: 20170822
  Receipt Date: 20180802
  Transmission Date: 20181010
  Serious: Yes (Hospitalization, Other)
  Sender: FDA-Public Use
  Company Number: RU-ASTRAZENECA-2017SE85170

PATIENT
  Age: 81 Year
  Sex: Female
  Weight: 72 kg

DRUGS (16)
  1. BRILINTA [Suspect]
     Active Substance: TICAGRELOR
     Indication: MYOCARDIAL INFARCTION
     Route: 048
     Dates: start: 20170318
  2. DIUVER [Concomitant]
     Active Substance: TORSEMIDE
     Dosage: 10.0MG UNKNOWN
  3. COMBILEN [Concomitant]
  4. DIUVER [Concomitant]
     Active Substance: TORSEMIDE
     Dosage: 5.0MG UNKNOWN
  5. CONCOR [Concomitant]
     Active Substance: BISOPROLOL FUMARATE
  6. METFORMIN [Concomitant]
     Active Substance: METFORMIN HYDROCHLORIDE
  7. NOLPAZA [Concomitant]
     Active Substance: PANTOPRAZOLE SODIUM
  8. CARDIOMAGNYL [Concomitant]
     Active Substance: ASPIRIN\MAGNESIUM HYDROXIDE
  9. PERINEVA [Concomitant]
     Active Substance: PERINDOPRIL ERBUMINE
  10. PREDUCTAL A [Concomitant]
  11. CALCIUM [Concomitant]
     Active Substance: CALCIUM
  12. DIUVER [Concomitant]
     Active Substance: TORSEMIDE
     Dosage: 5.0MG UNKNOWN
  13. ROSUCARD [Concomitant]
     Active Substance: ROSUVASTATIN CALCIUM
  14. INDAPAMIDE. [Concomitant]
     Active Substance: INDAPAMIDE
  15. LOZAP [Concomitant]
  16. CORAXAN [Concomitant]

REACTIONS (15)
  - Type 2 diabetes mellitus [Unknown]
  - Dyspnoea [Not Recovered/Not Resolved]
  - Off label use [Unknown]
  - Hypoglycaemia [Unknown]
  - Haemorrhoidal haemorrhage [Unknown]
  - Nausea [Unknown]
  - Cholelithiasis [Unknown]
  - Pain [Not Recovered/Not Resolved]
  - Asthenia [Unknown]
  - Large intestine polyp [Unknown]
  - Musculoskeletal disorder [Not Recovered/Not Resolved]
  - Malaise [Unknown]
  - Angina unstable [Recovered/Resolved]
  - Blood pressure fluctuation [Not Recovered/Not Resolved]
  - Product use issue [Unknown]

NARRATIVE: CASE EVENT DATE: 201706
